FAERS Safety Report 7987070-9 (Version None)
Quarter: 2011Q4

REPORT INFORMATION
  Report Type: 
  Country: None (occurrence: None)
  Receive Date: 20111216
  Receipt Date: 20111004
  Transmission Date: 20120403
  Serious: No
  Sender: FDA-Public Use
  Company Number: US-BRISTOL-MYERS SQUIBB COMPANY-16102725

PATIENT
  Age: 59 Year
  Sex: Male
  Weight: 68 kg

DRUGS (2)
  1. ABILIFY [Suspect]
     Indication: TOURETTE'S DISORDER
     Dosage: 1DF:2.5-5MG(15MGTAB INTO QUARTER),FOR 5-6YRS,STOPD END OF AUG11,OFF FOR ~3WKS,PUT BACK 5MG/D 23SEP11
     Route: 048
     Dates: start: 20060101
  2. SIMVASTATIN [Concomitant]

REACTIONS (2)
  - DRY MOUTH [None]
  - WRONG TECHNIQUE IN DRUG USAGE PROCESS [None]
